FAERS Safety Report 15539084 (Version 2)
Quarter: 2019Q2

REPORT INFORMATION
  Report Type: Spontaneous
  Country: BR (occurrence: BR)
  Receive Date: 20181022
  Receipt Date: 20190607
  Transmission Date: 20190711
  Serious: No
  Sender: FDA-Public Use
  Company Number: BR-TEIKOKU PHARMA USA-TPU2018-00640

PATIENT
  Sex: Female

DRUGS (15)
  1. INDAPEN [Concomitant]
     Active Substance: INDAPAMIDE
     Dates: start: 2018
  2. GLIBENCLAMIDE [Concomitant]
     Active Substance: GLYBURIDE
     Dates: start: 2012
  3. TOPERMA [Suspect]
     Active Substance: LIDOCAINE
     Indication: CHRONIC INFLAMMATORY DEMYELINATING POLYRADICULONEUROPATHY
     Route: 062
     Dates: start: 2017, end: 201812
  4. ASPIRINA INFANTIL [Concomitant]
     Dates: start: 2013
  5. CIPROFIBRATE [Concomitant]
     Active Substance: CIPROFIBRATE
  6. LOSARTAN POTASSIUM. [Concomitant]
     Active Substance: LOSARTAN POTASSIUM
     Dates: start: 2013
  7. GLIFAGE [Concomitant]
     Active Substance: METFORMIN HYDROCHLORIDE
     Dates: start: 2012
  8. ROSUVASTATINE [Concomitant]
     Active Substance: ROSUVASTATIN
  9. PREGABALINE [Concomitant]
     Active Substance: PREGABALIN
     Dates: start: 2010
  10. VELIJA [Concomitant]
     Active Substance: DULOXETINE HYDROCHLORIDE
  11. DILTIAZEM. [Concomitant]
     Active Substance: DILTIAZEM
  12. METOPROLOL TARTRATE. [Concomitant]
     Active Substance: METOPROLOL TARTRATE
     Dates: start: 2013
  13. CLOPIDOGREL HYDROCHLORIDE [Concomitant]
     Active Substance: CLOPIDOGREL HYDROCHLORIDE
  14. DONAREN [Concomitant]
     Active Substance: TRAZODONE HYDROCHLORIDE
     Dates: start: 2018
  15. VITAMIN E [Concomitant]
     Active Substance: .ALPHA.-TOCOPHEROL
     Dates: start: 2018

REACTIONS (1)
  - No adverse event [Unknown]
